FAERS Safety Report 4641337-0 (Version None)
Quarter: 2005Q2

REPORT INFORMATION
  Report Type: 
  Country: None (occurrence: None)
  Receive Date: 20050419
  Receipt Date: 20050406
  Transmission Date: 20051028
  Serious: Yes (Hospitalization)
  Sender: FDA-Public Use
  Company Number: 05P-056-0296842-00

PATIENT
  Age: 67 Year
  Sex: Male
  Weight: 118 kg

DRUGS (2)
  1. VERCYTE [Suspect]
     Indication: THROMBOCYTOPENIA
     Dosage: 25 MG, 1 IN 1 D, PER ORAL
     Route: 048
     Dates: start: 20040701, end: 20050221
  2. ALLOPURINOL [Suspect]
     Dosage: 300 MG , 1 IN 1 D, PER ORAL
     Route: 048
     Dates: end: 20050303

REACTIONS (4)
  - HEPATIC LESION [None]
  - PANCYTOPENIA [None]
  - PURPURA [None]
  - RENAL FAILURE [None]
